FAERS Safety Report 4478908-0 (Version None)
Quarter: 2004Q4

REPORT INFORMATION
  Report Type: 
  Country: None (occurrence: None)
  Receive Date: 20041018
  Receipt Date: 20041004
  Transmission Date: 20050328
  Serious: Yes (Hospitalization)
  Sender: FDA-Public Use
  Company Number: 1781-083

PATIENT
  Age: 56 Year
  Sex: Male

DRUGS (1)
  1. METHYLENE BLUE INJ., 10MG/ML, 1 ML AMPULE [Suspect]
     Indication: COLONIC POLYP

REACTIONS (3)
  - ABDOMINAL PAIN [None]
  - INFLAMMATION [None]
  - PERITONITIS [None]
